FAERS Safety Report 20942711 (Version 3)
Quarter: 2022Q3

REPORT INFORMATION
  Report Type: Spontaneous
  Country: US (occurrence: US)
  Receive Date: 20220610
  Receipt Date: 20220809
  Transmission Date: 20221027
  Serious: No
  Sender: FDA-Public Use
  Company Number: US-UNITED THERAPEUTICS-UNT-2022-008768

PATIENT
  Sex: Female

DRUGS (4)
  1. TYVASO [Suspect]
     Active Substance: TREPROSTINIL
     Indication: Pulmonary arterial hypertension
     Dosage: UNK
     Dates: start: 20220413
  2. TYVASO [Suspect]
     Active Substance: TREPROSTINIL
     Dosage: 18 ?G, QID
     Dates: start: 202204, end: 2022
  3. TYVASO [Suspect]
     Active Substance: TREPROSTINIL
     Dosage: 36 ?G, QID
     Dates: start: 2022, end: 2022
  4. TYVASO [Suspect]
     Active Substance: TREPROSTINIL
     Dosage: 54 ?G, QID
     Dates: start: 2022

REACTIONS (14)
  - Headache [Unknown]
  - Cough [Unknown]
  - Dizziness [Unknown]
  - Constipation [Unknown]
  - Peripheral swelling [Unknown]
  - Joint swelling [Unknown]
  - Fluid retention [Unknown]
  - Weight increased [Unknown]
  - Malaise [Unknown]
  - Dyspnoea [Unknown]
  - Fatigue [Unknown]
  - Oropharyngeal pain [Unknown]
  - Product dose omission issue [Recovered/Resolved]
  - Drug dose titration not performed [Unknown]

NARRATIVE: CASE EVENT DATE: 20220101
